FAERS Safety Report 9005017 (Version 2)
Quarter: 2013Q1

REPORT INFORMATION
  Report Type: Report from Study
  Country: CA (occurrence: CA)
  Receive Date: 20130109
  Receipt Date: 20130313
  Transmission Date: 20140127
  Serious: Yes (Hospitalization, Other)
  Sender: FDA-Public Use
  Company Number: CA-JNJFOC-20130102044

PATIENT
  Sex: Female
  Weight: 56.5 kg

DRUGS (2)
  1. REMICADE [Suspect]
     Indication: CROHN^S DISEASE
     Route: 042
     Dates: start: 20110816
  2. ALESSE [Concomitant]
     Route: 065

REACTIONS (1)
  - Intestinal stenosis [Recovering/Resolving]
